FAERS Safety Report 9611083 (Version 2)
Quarter: 2013Q4

REPORT INFORMATION
  Report Type: Spontaneous
  Country: US (occurrence: US)
  Receive Date: 20131009
  Receipt Date: 20131009
  Transmission Date: 20140711
  Serious: Yes (Other)
  Sender: FDA-Public Use
  Company Number: US-SAVIENT-2013S1000063

PATIENT
  Age: 42 Year
  Sex: Male

DRUGS (11)
  1. KRYSTEXXA [Suspect]
     Indication: GOUT
     Route: 042
     Dates: start: 20130628, end: 20130628
  2. KRYSTEXXA [Suspect]
     Indication: GOUTY TOPHUS
     Route: 042
     Dates: start: 20130712, end: 20130712
  3. SOLU CORTEF [Concomitant]
     Indication: ALLERGY PROPHYLAXIS
     Route: 042
  4. TYLENOL [Concomitant]
     Indication: ALLERGY PROPHYLAXIS
     Route: 048
  5. BENADRYL [Concomitant]
     Indication: ALLERGY PROPHYLAXIS
     Route: 042
  6. ATENOLOL [Concomitant]
     Indication: PRODUCT USED FOR UNKNOWN INDICATION
     Route: 048
  7. FOSAMAX [Concomitant]
     Indication: PRODUCT USED FOR UNKNOWN INDICATION
     Route: 048
  8. HYDROCODONE [Concomitant]
     Indication: PRODUCT USED FOR UNKNOWN INDICATION
     Route: 048
  9. INDOMETHACIN [Concomitant]
     Indication: PRODUCT USED FOR UNKNOWN INDICATION
  10. IBUPROFEN [Concomitant]
     Indication: PRODUCT USED FOR UNKNOWN INDICATION
  11. CALCIUM + VITAMIN D [Concomitant]
     Indication: PRODUCT USED FOR UNKNOWN INDICATION

REACTIONS (2)
  - Infusion related reaction [Recovered/Resolved]
  - Therapeutic response decreased [Unknown]
